FAERS Safety Report 10234133 (Version 2)
Quarter: 2014Q3

REPORT INFORMATION
  Report Type: Spontaneous
  Country: BR (occurrence: BR)
  Receive Date: 20140612
  Receipt Date: 20140703
  Transmission Date: 20150326
  Serious: Yes (Other)
  Sender: FDA-Public Use
  Company Number: BR-GLAXOSMITHKLINE-A1076682A

PATIENT
  Age: 14 Month
  Sex: Female

DRUGS (1)
  1. ZINNAT [Suspect]
     Active Substance: CEFUROXIME AXETIL
     Indication: SINUSITIS
     Route: 048
     Dates: start: 201405, end: 201405

REACTIONS (2)
  - Drug ineffective [Recovered/Resolved]
  - Erosive oesophagitis [Recovered/Resolved]

NARRATIVE: CASE EVENT DATE: 201405
